FAERS Safety Report 24535180 (Version 1)
Quarter: 2024Q4

REPORT INFORMATION
  Report Type: Spontaneous
  Country: US (occurrence: US)
  Receive Date: 20241022
  Receipt Date: 20241022
  Transmission Date: 20250114
  Serious: Yes (Other)
  Sender: SANDOZ
  Company Number: US-NOVPHSZ-PHHY2019US207734

PATIENT
  Age: 71 Year
  Sex: Female

DRUGS (3)
  1. DOPAMINE [Suspect]
     Active Substance: DOPAMINE HYDROCHLORIDE
     Indication: Haemodynamic instability
     Dosage: UNK
     Route: 065
  2. MILRINONE [Suspect]
     Active Substance: MILRINONE
     Indication: Haemodynamic instability
     Dosage: UNK
     Route: 065
  3. NOREPINEPHRINE [Suspect]
     Active Substance: NOREPINEPHRINE\NOREPINEPHRINE BITARTRATE
     Indication: Haemodynamic instability
     Dosage: UNK
     Route: 065

REACTIONS (1)
  - Haemodynamic instability [Unknown]
